FAERS Safety Report 13166935 (Version 1)
Quarter: 2017Q1

REPORT INFORMATION
  Report Type: Spontaneous
  Country: US (occurrence: US)
  Receive Date: 20170130
  Receipt Date: 20170130
  Transmission Date: 20170428
  Serious: Yes (Life-Threatening, Hospitalization, Disabling, Other)
  Sender: FDA-Public Use
  Company Number: None

PATIENT
  Age: 45 Year
  Sex: Female
  Weight: 103.5 kg

DRUGS (8)
  1. ESTRACE [Concomitant]
     Active Substance: ESTRADIOL
  2. MULTIVITAMINS [Concomitant]
     Active Substance: VITAMINS
  3. EFFEXOR [Suspect]
     Active Substance: VENLAFAXINE HYDROCHLORIDE
  4. VITAMIN C [Concomitant]
     Active Substance: ASCORBIC ACID
  5. VITAMIN D [Concomitant]
     Active Substance: CHOLECALCIFEROL
  6. LAMICTAL [Suspect]
     Active Substance: LAMOTRIGINE
     Indication: DEPRESSION
     Route: 048
  7. OMEPROZAL [Concomitant]
  8. TRAZADON [Suspect]
     Active Substance: TRAZODONE HYDROCHLORIDE

REACTIONS (7)
  - Insomnia [None]
  - Psychotic disorder [None]
  - Suicide attempt [None]
  - Phobia [None]
  - Malaise [None]
  - Withdrawal syndrome [None]
  - Influenza like illness [None]

NARRATIVE: CASE EVENT DATE: 20120110
